FAERS Safety Report 22640589 (Version 2)
Quarter: 2023Q2

REPORT INFORMATION
  Report Type: Report from Study
  Country: US (occurrence: US)
  Receive Date: 20230626
  Receipt Date: 20230626
  Transmission Date: 20230722
  Serious: No
  Sender: FDA-Public Use
  Company Number: US-002147023-NVSC2023US141893

PATIENT
  Sex: Female

DRUGS (10)
  1. ATORVASTATIN [Suspect]
     Active Substance: ATORVASTATIN
     Indication: Psoriasis
     Route: 065
  2. CLOBETASOL [Suspect]
     Active Substance: CLOBETASOL
     Indication: Psoriasis
     Route: 065
  3. METFORMIN [Suspect]
     Active Substance: METFORMIN HYDROCHLORIDE
     Indication: Psoriasis
     Route: 065
  4. MOMETASONE [Suspect]
     Active Substance: MOMETASONE
     Indication: Psoriasis
     Route: 065
  5. HYDROXYZINE [Suspect]
     Active Substance: HYDROXYZINE HYDROCHLORIDE
     Indication: Psoriasis
     Route: 065
  6. SPIRONOLACTONE [Suspect]
     Active Substance: SPIRONOLACTONE
     Indication: Psoriasis
     Route: 065
  7. VITAMINS [Suspect]
     Active Substance: VITAMINS
     Indication: Psoriasis
     Route: 065
  8. GLIMEPIRIDE [Suspect]
     Active Substance: GLIMEPIRIDE
     Indication: Psoriasis
     Route: 065
  9. PROGESTERONE [Suspect]
     Active Substance: PROGESTERONE
     Indication: Psoriasis
     Route: 065
  10. TESTOSTERONE [Suspect]
     Active Substance: TESTOSTERONE
     Indication: Psoriasis
     Route: 065

REACTIONS (7)
  - Skin irritation [Unknown]
  - Pruritus [Unknown]
  - Dermatitis [Unknown]
  - Hidradenitis [Unknown]
  - Nodule [Unknown]
  - Drug ineffective [Unknown]
  - Product use in unapproved indication [Unknown]
